FAERS Safety Report 18292503 (Version 1)
Quarter: 2020Q3

REPORT INFORMATION
  Report Type: Spontaneous
  Country: US (occurrence: US)
  Receive Date: 20200921
  Receipt Date: 20200921
  Transmission Date: 20201103
  Serious: No
  Sender: FDA-Public Use
  Company Number: None

PATIENT
  Age: 54 Year
  Sex: Female

DRUGS (1)
  1. CIPRO [Suspect]
     Active Substance: CIPROFLOXACIN HYDROCHLORIDE
     Route: 048
     Dates: start: 20120913, end: 20120921

REACTIONS (8)
  - Feeling abnormal [None]
  - Tendon disorder [None]
  - Diaphragmatic disorder [None]
  - Muscle fatigue [None]
  - Hypersomnia [None]
  - Vocal cord dysfunction [None]
  - Pelvic floor dysfunction [None]
  - Disability [None]

NARRATIVE: CASE EVENT DATE: 20120921
